FAERS Safety Report 8062546-7 (Version None)
Quarter: 2012Q1

REPORT INFORMATION
  Report Type: 
  Country: None (occurrence: None)
  Receive Date: 20120118
  Receipt Date: 20120111
  Transmission Date: 20120608
  Serious: Yes (Hospitalization)
  Sender: FDA-Public Use
  Company Number: 2012-000075

PATIENT
  Age: 70 Year
  Sex: Female

DRUGS (11)
  1. URSODIOL [Concomitant]
  2. PANTOPRAZOLE [Concomitant]
  3. ATELVIA [Suspect]
     Indication: OSTEOPOROSIS
     Dosage: 35 MG ONCE WEEKLY, ORAL
     Route: 048
     Dates: start: 20111118, end: 20111202
  4. PREDNISOLONE (MILLIPRED) [Concomitant]
  5. RAMIPRIL [Concomitant]
  6. ACTONEL [Suspect]
     Indication: OSTEOPOROSIS
     Dosage: 35 MG ONCE WEEKLY, ORAL
     Route: 048
     Dates: start: 20040501, end: 20040901
  7. TYLENOL /00020001/ (PARACETAMOL) [Concomitant]
  8. VITAMIN D [Suspect]
     Indication: OSTEOPOROSIS
     Dosage: 50000 IU EVERY 2 WEEKS
     Dates: start: 20111123, end: 20111207
  9. CELLCEPT /01275102/ (MYCOPHENOLATE MOFETIL) [Concomitant]
  10. RAPAMUNE [Concomitant]
  11. ALL OTHER THERAPEUTIC PRODUCTS [Concomitant]

REACTIONS (6)
  - NAUSEA [None]
  - MYALGIA [None]
  - VOMITING [None]
  - ARTHRALGIA [None]
  - DIARRHOEA [None]
  - JOINT SWELLING [None]
